FAERS Safety Report 18342863 (Version 1)
Quarter: 2020Q4

REPORT INFORMATION
  Report Type: Spontaneous
  Country: US (occurrence: US)
  Receive Date: 20201005
  Receipt Date: 20201005
  Transmission Date: 20210113
  Serious: No
  Sender: FDA-Public Use
  Company Number: US-DRREDDYS-USA/USA/20/0127386

PATIENT

DRUGS (1)
  1. ZOLEDRONIC [Suspect]
     Active Substance: ZOLEDRONIC ACID
     Indication: PRODUCT USED FOR UNKNOWN INDICATION
     Dosage: ZOLEDRONIC ACID, 5 MG (BASE)/100 ML
     Route: 042

REACTIONS (3)
  - Back pain [Unknown]
  - Influenza like illness [Unknown]
  - Incorrect drug administration rate [Unknown]
